FAERS Safety Report 8478820-6 (Version None)
Quarter: 2012Q2

REPORT INFORMATION
  Report Type: 
  Country: None (occurrence: None)
  Receive Date: 20120629
  Receipt Date: 20120621
  Transmission Date: 20120825
  Serious: Yes (Other)
  Sender: FDA-Public Use
  Company Number: US-JNJFOC-20120611176

PATIENT
  Sex: Female
  Weight: 50.8 kg

DRUGS (6)
  1. ACETAMINOPHEN [Suspect]
     Indication: PAIN
     Dosage: 500-1000MG 500MG AS NEEDED
     Route: 065
  2. TRAMADOL HCL [Suspect]
     Indication: INTERVERTEBRAL DISC DEGENERATION
     Dosage: THREE AND HALF 50 MG TABLETS DAILY
     Route: 048
     Dates: start: 20120101
  3. TRAMADOL HCL [Suspect]
     Dosage: 50 MG TABLETS
     Route: 048
     Dates: start: 20080101
  4. ACETAMINOPHEN [Suspect]
     Indication: BREAKTHROUGH PAIN
     Dosage: 500-1000MG 500MG AS NEEDED
     Route: 065
  5. TRAMADOL HCL [Suspect]
     Route: 048
     Dates: start: 20120101
  6. ULTRAM [Suspect]
     Indication: INTERVERTEBRAL DISC DEGENERATION
     Route: 048
     Dates: end: 20080101

REACTIONS (2)
  - DRUG INEFFECTIVE [None]
  - DEPENDENCE [None]
